FAERS Safety Report 6870064-4 (Version None)
Quarter: 2010Q3

REPORT INFORMATION
  Report Type: 
  Country: None (occurrence: None)
  Receive Date: 20100722
  Receipt Date: 20100212
  Transmission Date: 20110219
  Serious: No
  Sender: FDA-Public Use
  Company Number: US-PFIZER INC-2008067307

PATIENT
  Sex: Male
  Weight: 107 kg

DRUGS (6)
  1. CHANTIX [Suspect]
     Indication: SMOKING CESSATION THERAPY
     Dosage: 0.5 MG, 2X/DAY
     Route: 048
     Dates: start: 20080730
  2. CHANTIX [Suspect]
     Dosage: UNK MG, UNK
     Route: 048
     Dates: start: 20100128
  3. CADUET [Concomitant]
     Dosage: UNK
  4. METOPROLOL [Concomitant]
     Dosage: UNK
  5. FISH OIL [Concomitant]
     Dosage: UNK
  6. TRIDENT [Concomitant]
     Dosage: UNK

REACTIONS (8)
  - ANXIETY [None]
  - DRUG INEFFECTIVE [None]
  - HYPERHIDROSIS [None]
  - NAUSEA [None]
  - NERVOUSNESS [None]
  - STRESS [None]
  - TREMOR [None]
  - WITHDRAWAL SYNDROME [None]
